FAERS Safety Report 21789071 (Version 2)
Quarter: 2023Q1

REPORT INFORMATION
  Report Type: Spontaneous
  Country: JP (occurrence: JP)
  Receive Date: 20221228
  Receipt Date: 20230119
  Transmission Date: 20230418
  Serious: Yes (Death)
  Sender: FDA-Public Use
  Company Number: JP-ELI_LILLY_AND_COMPANY-JP202211010000

PATIENT
  Age: 75 Year
  Sex: Male

DRUGS (3)
  1. NECITUMUMAB [Suspect]
     Active Substance: NECITUMUMAB
     Indication: Lung squamous cell carcinoma recurrent
     Dosage: 800 MG, UNKNOWN
     Route: 041
     Dates: start: 20221025
  2. CISPLATIN [Concomitant]
     Active Substance: CISPLATIN
     Indication: Lung squamous cell carcinoma recurrent
     Dosage: UNK
     Dates: start: 20221025
  3. GEMCITABINE [Concomitant]
     Active Substance: GEMCITABINE
     Indication: Lung squamous cell carcinoma recurrent
     Dosage: UNK
     Dates: start: 20221025

REACTIONS (2)
  - Embolism [Fatal]
  - Rash [Recovered/Resolved]

NARRATIVE: CASE EVENT DATE: 20221219
